FAERS Safety Report 16686406 (Version 5)
Quarter: 2019Q4

REPORT INFORMATION
  Report Type: Report from Study
  Country: KR (occurrence: KR)
  Receive Date: 20190809
  Receipt Date: 20191021
  Transmission Date: 20200122
  Serious: Yes (Hospitalization)
  Sender: FDA-Public Use
  Company Number: KR-CELLTRION INC.-2019KR023463

PATIENT

DRUGS (9)
  1. GENEXOL [PACLITAXEL] [Suspect]
     Active Substance: PACLITAXEL
     Dosage: UNK, CYCLE 2 CHEMOTHERAPY AT SEP 02
  2. RAMUCIRUMAB [Suspect]
     Active Substance: RAMUCIRUMAB
     Dosage: 328 UNK
     Route: 042
     Dates: start: 20190902, end: 20190917
  3. HERZUMA [Suspect]
     Active Substance: TRASTUZUMAB-PKRB
     Dosage: 82 MG
     Route: 042
     Dates: start: 20190902, end: 20190917
  4. RAMUCIRUMAB [Suspect]
     Active Substance: RAMUCIRUMAB
     Indication: PRODUCT USED FOR UNKNOWN INDICATION
     Dosage: 392 UNK
     Route: 042
     Dates: start: 20190723, end: 20190723
  5. GENEXOL [PACLITAXEL] [Suspect]
     Active Substance: PACLITAXEL
     Dosage: 106.4 UNK
     Route: 042
     Dates: start: 20190902, end: 20190917
  6. HERZUMA [Suspect]
     Active Substance: TRASTUZUMAB-PKRB
     Dosage: 2 MG/KG (98 MG)
     Route: 042
     Dates: start: 20190731, end: 20190731
  7. HERZUMA [Suspect]
     Active Substance: TRASTUZUMAB-PKRB
     Indication: HER-2 POSITIVE GASTRIC CANCER
     Dosage: 4 MG/KG (196 MG)
     Route: 042
     Dates: start: 20190723, end: 20190723
  8. RAMUCIRUMAB [Suspect]
     Active Substance: RAMUCIRUMAB
     Dosage: UNK, CYCLE 2 CHEMOTHERAPY AT SEP 02
  9. GENEXOL [PACLITAXEL] [Suspect]
     Active Substance: PACLITAXEL
     Indication: PRODUCT USED FOR UNKNOWN INDICATION
     Dosage: 116.8 UNK
     Route: 042
     Dates: start: 20190723, end: 20190731

REACTIONS (5)
  - Colitis [Recovered/Resolved]
  - Anaemia [Recovered/Resolved]
  - Haematochezia [Unknown]
  - Abdominal pain [Recovered/Resolved]
  - Clostridium difficile infection [Recovering/Resolving]

NARRATIVE: CASE EVENT DATE: 20190730
